FAERS Safety Report 6312210-7 (Version None)
Quarter: 2009Q3

REPORT INFORMATION
  Report Type: 
  Country: None (occurrence: None)
  Receive Date: 20090813
  Receipt Date: 20090813
  Transmission Date: 20100115
  Serious: Yes (Hospitalization)
  Sender: FDA-Public Use
  Company Number: None

PATIENT
  Age: 25 Year
  Sex: Female
  Weight: 62 kg

DRUGS (2)
  1. YAZ [Suspect]
     Indication: CONTRACEPTION
     Dosage: 1 TAB DAILY PO
     Route: 048
     Dates: start: 20090130, end: 20090430
  2. YAZ [Suspect]
     Indication: POLYCYSTIC OVARIES
     Dosage: 1 TAB DAILY PO
     Route: 048
     Dates: start: 20090130, end: 20090430

REACTIONS (6)
  - ABDOMINAL PAIN LOWER [None]
  - FACTOR II DEFICIENCY [None]
  - FACTOR V DEFICIENCY [None]
  - FLANK PAIN [None]
  - NEPHROLITHIASIS [None]
  - PELVIC VENOUS THROMBOSIS [None]
